FAERS Safety Report 25987826 (Version 2)
Quarter: 2025Q4

REPORT INFORMATION
  Report Type: Spontaneous
  Country: JP (occurrence: JP)
  Receive Date: 20251103
  Receipt Date: 20251110
  Transmission Date: 20260117
  Serious: No
  Sender: ARGENX BVBA
  Company Number: JP-ARGENX-2025-ARGX-JP014684

PATIENT

DRUGS (1)
  1. VYVGART [Suspect]
     Active Substance: EFGARTIGIMOD ALFA-FCAB
     Indication: Immune thrombocytopenia
     Dosage: UNK
     Route: 042

REACTIONS (1)
  - No adverse event [Unknown]
